FAERS Safety Report 14291910 (Version 3)
Quarter: 2018Q1

REPORT INFORMATION
  Report Type: Spontaneous
  Country: DE (occurrence: DE)
  Receive Date: 20171215
  Receipt Date: 20180328
  Transmission Date: 20180509
  Serious: No
  Sender: FDA-Public Use
  Company Number: DE-009507513-1712DEU005409

PATIENT

DRUGS (6)
  1. CANDESARTAN HCT ACTAVIS [Concomitant]
     Indication: HYPERTENSION
     Dosage: UNK
     Route: 065
  2. LANTAREL [Concomitant]
     Active Substance: METHOTREXATE SODIUM
     Indication: RHEUMATOID ARTHRITIS
     Dosage: UNK
     Route: 065
  3. THYROXIN [Concomitant]
     Active Substance: LEVOTHYROXINE
     Indication: THYROID DISORDER
     Dosage: UNK
     Route: 065
  4. RIZATRIPTAN BENZOATE. [Suspect]
     Active Substance: RIZATRIPTAN BENZOATE
     Indication: MIGRAINE
     Dosage: UNK, PRN (PROBABLY AS REQUIRED)
     Route: 048
     Dates: start: 201707, end: 20171114
  5. IBUPROFEN. [Concomitant]
     Active Substance: IBUPROFEN
     Indication: PAIN
     Dosage: UNK
     Route: 065
  6. NOVAMINSULFON [Concomitant]
     Active Substance: METAMIZOLE
     Indication: PAIN
     Dosage: UNK, PRN, SELDOMLY
     Route: 065

REACTIONS (4)
  - Product taste abnormal [Unknown]
  - Vomiting [Recovered/Resolved]
  - Product use complaint [Unknown]
  - Nausea [Recovered/Resolved]
